FAERS Safety Report 19879824 (Version 1)
Quarter: 2021Q3

REPORT INFORMATION
  Report Type: Spontaneous
  Country: ES (occurrence: ES)
  Receive Date: 20210924
  Receipt Date: 20210924
  Transmission Date: 20211014
  Serious: Yes (Other)
  Sender: FDA-Public Use
  Company Number: ES-MYLANLABS-2021M1064384

PATIENT
  Age: 57 Year
  Sex: Female

DRUGS (15)
  1. SINTROM [Concomitant]
     Active Substance: ACENOCOUMAROL
     Indication: EMBOLISM
     Dosage: 2 MILLIGRAM, QD
     Route: 048
     Dates: start: 20140926
  2. DEMILOS [Concomitant]
     Active Substance: CALCIUM CARBONATE\CHOLECALCIFEROL
     Indication: OSTEOPOROSIS
     Dosage: 1 DOSAGE FORM, QD
     Route: 048
     Dates: start: 20170714
  3. MIRAPEXIN [Concomitant]
     Active Substance: PRAMIPEXOLE
     Indication: EXTRAPYRAMIDAL DISORDER
     Dosage: 1.05 MILLIGRAM, QD
     Route: 048
     Dates: start: 20150519
  4. DILTIWAS [Concomitant]
     Active Substance: DILTIAZEM HYDROCHLORIDE
     Indication: ANXIETY
     Dosage: 1 MILLIGRAM, QD
     Route: 048
     Dates: start: 20131107
  5. PALEXIA [Concomitant]
     Active Substance: TAPENTADOL HYDROCHLORIDE
     Indication: ARTHRALGIA
     Dosage: 50 MILLIGRAM, BID
     Route: 048
     Dates: start: 20190415
  6. TRYPTIZOL [Concomitant]
     Active Substance: AMITRIPTYLINE HYDROCHLORIDE
     Indication: HEADACHE
     Dosage: 10 MILLIGRAM, QD
     Route: 048
     Dates: start: 20201204
  7. GABAPENTINA SANDOZ [Concomitant]
     Indication: LUMBAR SPINAL STENOSIS
     Dosage: 600 MILLIGRAM, Q8H
     Route: 048
     Dates: start: 20180706
  8. AIMOVIG [Concomitant]
     Active Substance: ERENUMAB-AOOE
     Indication: HEADACHE
     Dosage: 70 MILLIGRAM, 28D CYCLE
     Route: 058
     Dates: start: 20210323
  9. DILTIWAS [Concomitant]
     Active Substance: DILTIAZEM HYDROCHLORIDE
     Indication: ANGINA PECTORIS
     Dosage: 120 MILLIGRAM, QD
     Route: 048
     Dates: start: 20181030
  10. OTEZLA [Concomitant]
     Active Substance: APREMILAST
     Indication: PSORIATIC ARTHROPATHY
     Dosage: 30 MILLIGRAM, BID
     Dates: start: 20180405
  11. CLEXANE [Concomitant]
     Active Substance: ENOXAPARIN SODIUM
     Indication: ATRIAL FIBRILLATION
     Dosage: 40 MILLIGRAM, QD
     Route: 058
     Dates: start: 20210119
  12. MINITRAN [Suspect]
     Active Substance: NITROGLYCERIN
     Indication: ANXIETY
     Dosage: 10 MILLIGRAM, QD
     Dates: start: 20210411
  13. EZETROL [Concomitant]
     Active Substance: EZETIMIBE
     Indication: TYPE IIA HYPERLIPIDAEMIA
     Dosage: 10 MILLIGRAM, QD
     Route: 048
     Dates: start: 20170718
  14. OMEPRAZOL SANDOZ                   /00661201/ [Concomitant]
     Indication: ANAEMIA
     Dosage: 40 MILLIGRAM, QD
     Route: 048
     Dates: start: 20161222
  15. BALZAK PLUS [Concomitant]
     Active Substance: AMLODIPINE BESYLATE\HYDROCHLOROTHIAZIDE\OLMESARTAN MEDOXOMIL
     Indication: HYPERTENSION
     Dosage: 1 DOSAGE FORM, QD
     Route: 048
     Dates: start: 20161115

REACTIONS (2)
  - Dermatitis [Unknown]
  - Pruritus [Unknown]

NARRATIVE: CASE EVENT DATE: 20210415
